FAERS Safety Report 14467301 (Version 1)
Quarter: 2018Q1

REPORT INFORMATION
  Report Type: Spontaneous
  Country: US (occurrence: US)
  Receive Date: 20180131
  Receipt Date: 20180131
  Transmission Date: 20180509
  Serious: Yes (Death, Life-Threatening)
  Sender: FDA-Public Use
  Company Number: US-LPDUSPRD-20180092

PATIENT

DRUGS (3)
  1. CYCLOPHOSPHAMIDE. [Suspect]
     Active Substance: CYCLOPHOSPHAMIDE
     Dosage: UNKNOWN
     Route: 065
  2. AZATHIOPRINE. [Suspect]
     Active Substance: AZATHIOPRINE
     Dosage: UNKNOWN
     Route: 065
  3. CYCLOSPORINE INJECTION, USP (866-10) [Suspect]
     Active Substance: CYCLOSPORINE
     Dosage: UNKNOWN
     Route: 065

REACTIONS (1)
  - Myelodysplastic syndrome [Unknown]

NARRATIVE: CASE EVENT DATE: 2006
